FAERS Safety Report 12582501 (Version 2)
Quarter: 2016Q3

REPORT INFORMATION
  Report Type: Spontaneous
  Country: RU (occurrence: RU)
  Receive Date: 20160722
  Receipt Date: 20160805
  Transmission Date: 20161109
  Serious: Yes (Hospitalization, Other)
  Sender: FDA-Public Use
  Company Number: RU-ASTELLAS-2016US027469

PATIENT
  Age: 29 Year
  Sex: Female

DRUGS (2)
  1. PROGRAF [Suspect]
     Active Substance: TACROLIMUS\TACROLIMUS ANHYDROUS
     Indication: IMMUNOSUPPRESSANT DRUG THERAPY
     Route: 065
     Dates: end: 201607
  2. MYCOPHENOLIC ACID. [Suspect]
     Active Substance: MYCOPHENOLIC ACID
     Indication: IMMUNOSUPPRESSANT DRUG THERAPY
     Route: 065
     Dates: end: 201607

REACTIONS (18)
  - Nephrogenic anaemia [Unknown]
  - Hyperparathyroidism secondary [Unknown]
  - Cardiac failure chronic [Unknown]
  - Pulmonary oedema [Unknown]
  - Hypertensive cardiomyopathy [Unknown]
  - Pneumonia [Unknown]
  - Decreased appetite [Unknown]
  - Immunosuppressant drug level increased [Unknown]
  - Liver disorder [Unknown]
  - Kidney transplant rejection [Unknown]
  - Treatment noncompliance [Unknown]
  - Thrombocytopenia [Unknown]
  - Nausea [Unknown]
  - Azotaemia [Unknown]
  - Epistaxis [Unknown]
  - Vomiting [Unknown]
  - Acute allograft nephropathy [Unknown]
  - Asthenia [Unknown]

NARRATIVE: CASE EVENT DATE: 201508
